FAERS Safety Report 9174059 (Version 2)
Quarter: 2013Q2

REPORT INFORMATION
  Report Type: Spontaneous
  Country: US (occurrence: US)
  Receive Date: 20130320
  Receipt Date: 20130502
  Transmission Date: 20140414
  Serious: No
  Sender: FDA-Public Use
  Company Number: US-PFIZER INC-2013087921

PATIENT
  Age: 30 Year
  Sex: Male
  Weight: 90.7 kg

DRUGS (5)
  1. AZITHROMYCIN [Suspect]
     Indication: COUGH
     Dosage: 500 MG (TWO TABLETS OF 250MG ), UNK
     Route: 048
     Dates: start: 20130311
  2. AZITHROMYCIN [Suspect]
     Dosage: 250 MG, 1X/DAY
     Route: 048
     Dates: start: 20130312, end: 20130313
  3. NASONEX [Suspect]
     Indication: COUGH
     Dosage: UNK, 1X/DAY
     Dates: start: 20130311
  4. ADVIL [Concomitant]
     Indication: PAIN
     Dosage: UNK
  5. ALEVE [Concomitant]
     Indication: PAIN
     Dosage: UNK

REACTIONS (3)
  - Heart rate increased [Unknown]
  - Insomnia [Unknown]
  - Intentional drug misuse [Unknown]
